FAERS Safety Report 23014475 (Version 2)
Quarter: 2023Q4

REPORT INFORMATION
  Report Type: Spontaneous
  Country: BR (occurrence: BR)
  Receive Date: 20231002
  Receipt Date: 20231017
  Transmission Date: 20240110
  Serious: Yes (Hospitalization)
  Sender: FDA-Public Use
  Company Number: BR-BoehringerIngelheim-2023-BI-263318

PATIENT
  Age: 75 Year
  Sex: Male
  Weight: 56 kg

DRUGS (11)
  1. OLODATEROL HYDROCHLORIDE\TIOTROPIUM BROMIDE MONOHYDRATE [Suspect]
     Active Substance: OLODATEROL HYDROCHLORIDE\TIOTROPIUM BROMIDE MONOHYDRATE
     Indication: Emphysema
     Dosage: 2 CONSECUTIVE PUFFS AS SOON AS PATIENT WAKES UP.
     Route: 055
  2. BISOPROLOL [Concomitant]
     Active Substance: BISOPROLOL\BISOPROLOL FUMARATE
     Indication: Drug therapy
     Route: 048
  3. COMPLEXO B [Concomitant]
     Indication: Product used for unknown indication
     Dosage: 1 TABLET
     Route: 048
  4. ASPIRIN [Concomitant]
     Active Substance: ASPIRIN
     Indication: Anticoagulant therapy
     Dosage: 1 TABLET
     Route: 048
  5. Unoprost [Concomitant]
     Indication: Prostatomegaly
     Dosage: 1 TABLET
     Route: 048
  6. METAMIZOLE [Concomitant]
     Active Substance: METAMIZOLE
     Indication: Pain
     Dosage: A MAXIMUM OF 4 TABLETS A DAY.
     Route: 048
  7. HUMULIN NOS [Concomitant]
     Active Substance: INSULIN HUMAN
     Indication: Diabetes mellitus
     Dosage: ONE INJECTION OF INSULIN IN THE MORNING (12 UNITS) AND ONE INJECTION IN THE EVENING (10 UNITS).
  8. CARBOXYMETHYLCELLULOSE SODIUM [Concomitant]
     Active Substance: CARBOXYMETHYLCELLULOSE SODIUM
     Indication: Prophylaxis
     Dosage: ONE DROP IN EACH EYE,
     Route: 047
  9. TIMOLOL MALEATE [Concomitant]
     Active Substance: TIMOLOL MALEATE
     Indication: Prophylaxis
     Dosage: ONE DROP IN EACH EYE
     Route: 047
  10. CARBOMER [Concomitant]
     Active Substance: CARBOMER
     Indication: Prophylaxis
     Dosage: APPLY TO THE EYES
     Route: 047
  11. SIMVASTATIN [Concomitant]
     Active Substance: SIMVASTATIN
     Indication: Blood cholesterol increased
     Route: 048

REACTIONS (9)
  - Upper limb fracture [Not Recovered/Not Resolved]
  - Dizziness [Recovered/Resolved]
  - Fall [Not Recovered/Not Resolved]
  - Wrist fracture [Not Recovered/Not Resolved]
  - Skin laceration [Not Recovered/Not Resolved]
  - Hypoglycaemia [Recovered/Resolved]
  - Accident [Not Recovered/Not Resolved]
  - Drug ineffective [Not Recovered/Not Resolved]
  - Capillary fragility [Unknown]

NARRATIVE: CASE EVENT DATE: 20230818
